FAERS Safety Report 6068489-2 (Version None)
Quarter: 2009Q1

REPORT INFORMATION
  Report Type: 
  Country: None (occurrence: None)
  Receive Date: 20090206
  Receipt Date: 20090127
  Transmission Date: 20090719
  Serious: Yes (Death)
  Sender: FDA-Public Use
  Company Number: IN-PFIZER INC-2009165173

PATIENT

DRUGS (9)
  1. MAGNAMYCIN [Suspect]
     Indication: SEPSIS
     Dosage: 2 G, 2X/DAY
     Route: 042
     Dates: start: 20090114
  2. MAGNAMYCIN [Suspect]
     Indication: PNEUMONIA ASPIRATION
  3. PIPERACILLIN AND TAZOBACTAM [Concomitant]
     Dates: start: 20090106, end: 20090107
  4. MOXIFLOXACIN [Concomitant]
     Dates: start: 20090106, end: 20090114
  5. MEROPENEM [Concomitant]
     Dates: start: 20090107, end: 20090114
  6. METRONIDAZOLE BENZOATE [Concomitant]
     Dates: start: 20090106
  7. TEICOPLANIN [Concomitant]
     Dates: start: 20090108, end: 20090115
  8. LEVOFLOXACIN [Concomitant]
     Dates: start: 20090114
  9. CLARITHROMYCIN [Concomitant]
     Dates: start: 20090114

REACTIONS (1)
  - CARDIAC ARREST [None]
